FAERS Safety Report 6159150-4 (Version None)
Quarter: 2009Q2

REPORT INFORMATION
  Report Type: 
  Country: None (occurrence: None)
  Receive Date: 20090414
  Receipt Date: 20090403
  Transmission Date: 20091009
  Serious: Yes (Hospitalization)
  Sender: FDA-Public Use
  Company Number: 2007SP009206

PATIENT
  Age: 54 Year
  Sex: Female

DRUGS (3)
  1. TEMODAL [Suspect]
     Indication: GLIOSARCOMA
     Dosage: 75 MG/M2;PO
     Route: 048
     Dates: start: 20070314, end: 20070328
  2. VALPROATE SODIUM [Concomitant]
  3. LEVETIRACETAM [Concomitant]

REACTIONS (4)
  - ALVEOLITIS [None]
  - DRUG TOXICITY [None]
  - INTERSTITIAL LUNG DISEASE [None]
  - LUNG INFILTRATION [None]
